FAERS Safety Report 8058756-5 (Version None)
Quarter: 2012Q1

REPORT INFORMATION
  Report Type: 
  Country: None (occurrence: None)
  Receive Date: 20120120
  Receipt Date: 20120106
  Transmission Date: 20120608
  Serious: Yes (Hospitalization, Other)
  Sender: FDA-Public Use
  Company Number: JP-MYLANLABS-2012S1001075

PATIENT
  Age: 69 Year
  Sex: Female
  Weight: 39.8 kg

DRUGS (8)
  1. ROCURONIUM BROMIDE [Concomitant]
     Indication: GENERAL ANAESTHESIA
     Route: 042
     Dates: start: 20100716, end: 20100716
  2. OMEPRAZOLE [Concomitant]
     Indication: ANAESTHETIC PREMEDICATION
     Route: 042
     Dates: start: 20100716, end: 20100716
  3. REMIFENTANIL [Suspect]
     Indication: GENERAL ANAESTHESIA
     Route: 042
     Dates: start: 20100716, end: 20100716
  4. SEVOFLURANE [Suspect]
     Indication: GENERAL ANAESTHESIA
     Route: 055
     Dates: start: 20100716, end: 20100716
  5. PROPOFOL [Suspect]
     Indication: GENERAL ANAESTHESIA
     Route: 042
     Dates: start: 20100716, end: 20100716
  6. ROPIVACAINE HYDROCHLORIDE [Concomitant]
     Indication: GENERAL ANAESTHESIA
     Route: 008
     Dates: start: 20100716, end: 20100716
  7. FENTANYL CITRATE [Suspect]
     Indication: GENERAL ANAESTHESIA
     Route: 042
     Dates: start: 20100706, end: 20100706
  8. MEPIVACAINE HCL [Concomitant]
     Indication: LOCAL ANAESTHESIA
     Route: 061
     Dates: start: 20100716, end: 20100716

REACTIONS (1)
  - ATRIOVENTRICULAR BLOCK SECOND DEGREE [None]
